FAERS Safety Report 12981772 (Version 2)
Quarter: 2016Q4

REPORT INFORMATION
  Report Type: Spontaneous
  Country: LT (occurrence: LT)
  Receive Date: 20161129
  Receipt Date: 20161212
  Transmission Date: 20170207
  Serious: Yes (Hospitalization)
  Sender: FDA-Public Use
  Company Number: LT-ORION CORPORATION ORION PHARMA-ESCI2016-0002

PATIENT
  Sex: Male

DRUGS (2)
  1. ENTACAPONE (TRADE NAME UNKNOWN) [Suspect]
     Active Substance: ENTACAPONE
     Route: 065
  2. ESCITALOPRAM ORION [Suspect]
     Active Substance: ESCITALOPRAM OXALATE
     Dosage: NOT USED
     Route: 048

REACTIONS (6)
  - Asthenia [Unknown]
  - Drug dispensing error [Unknown]
  - Wrong drug administered [Unknown]
  - Dizziness [Unknown]
  - Nausea [Unknown]
  - Gait disturbance [Unknown]
